FAERS Safety Report 9771261 (Version 3)
Quarter: 2014Q2

REPORT INFORMATION
  Report Type: Spontaneous
  Country: US (occurrence: US)
  Receive Date: 20131218
  Receipt Date: 20140408
  Transmission Date: 20141212
  Serious: Yes (Other)
  Sender: FDA-Public Use
  Company Number: US-GILEAD-2013-0090243

PATIENT
  Sex: Male

DRUGS (5)
  1. LETAIRIS [Suspect]
     Indication: PULMONARY HYPERTENSION
     Dosage: 5 MG, QD
     Route: 048
     Dates: start: 20100719
  2. LETAIRIS [Suspect]
     Indication: CARDIAC DISORDER
  3. LETAIRIS [Suspect]
     Indication: LUNG DISORDER
  4. LETAIRIS [Suspect]
     Indication: CHRONIC OBSTRUCTIVE PULMONARY DISEASE
  5. REVATIO [Concomitant]

REACTIONS (1)
  - Syncope [Unknown]
